FAERS Safety Report 4720300-5 (Version None)
Quarter: 2005Q3

REPORT INFORMATION
  Report Type: 
  Country: None (occurrence: None)
  Receive Date: 20050719
  Receipt Date: 20050711
  Transmission Date: 20060218
  Serious: Yes (Death)
  Sender: FDA-Public Use
  Company Number: PHBS2005CO09998

PATIENT
  Age: 80 Year
  Sex: Male

DRUGS (4)
  1. LAMISIL [Suspect]
     Indication: NAIL TINEA
     Dosage: 250 MG/D, ORAL
     Route: 048
     Dates: start: 20050627
  2. LAMISIL [Suspect]
     Indication: TINEA PEDIS
     Dosage: QD, TOPICAL
     Route: 061
     Dates: start: 20050304
  3. EUGLUCON (GLIBENCLAMIDE) [Concomitant]
  4. ALLOPURINOL [Concomitant]

REACTIONS (1)
  - HEPATIC FAILURE [None]
